FAERS Safety Report 17167058 (Version 1)
Quarter: 2019Q4

REPORT INFORMATION
  Report Type: Spontaneous
  Country: IT (occurrence: IT)
  Receive Date: 20191217
  Receipt Date: 20191217
  Transmission Date: 20200122
  Serious: Yes (Death, Other)
  Sender: FDA-Public Use
  Company Number: IT-INCYTE CORPORATION-2019IN012481

PATIENT

DRUGS (1)
  1. JAKAVI [Suspect]
     Active Substance: RUXOLITINIB
     Indication: CHRONIC GRAFT VERSUS HOST DISEASE
     Dosage: 5 MG, BID
     Route: 065
     Dates: start: 20170222, end: 201708

REACTIONS (4)
  - Product use in unapproved indication [Unknown]
  - Cardiac failure [Fatal]
  - Scleroderma [Unknown]
  - Condition aggravated [Unknown]

NARRATIVE: CASE EVENT DATE: 20170905
